FAERS Safety Report 10077163 (Version 1)
Quarter: 2014Q2

REPORT INFORMATION
  Report Type: Spontaneous
  Country: AU (occurrence: AU)
  Receive Date: 20140414
  Receipt Date: 20140414
  Transmission Date: 20141212
  Serious: Yes (Other)
  Sender: FDA-Public Use
  Company Number: PHHY2014AU042390

PATIENT
  Age: 6 Year
  Sex: Female

DRUGS (1)
  1. SCITROPIN [Suspect]
     Indication: HYPOPITUITARISM

REACTIONS (2)
  - Brain oedema [Recovered/Resolved]
  - Oedema peripheral [Recovered/Resolved]
